FAERS Safety Report 5088630-8 (Version None)
Quarter: 2006Q3

REPORT INFORMATION
  Report Type: 
  Country: None (occurrence: None)
  Receive Date: 20060822
  Receipt Date: 20060814
  Transmission Date: 20061208
  Serious: Yes (Other)
  Sender: FDA-Public Use
  Company Number: 2006BH012741

PATIENT
  Age: 77 Year
  Sex: Female

DRUGS (1)
  1. REGLAN [Suspect]
     Indication: PROPHYLAXIS OF NAUSEA AND VOMITING
     Dosage: 10 MG; ONCE; IV
     Route: 042
     Dates: start: 20060508, end: 20060508

REACTIONS (10)
  - ASTHENIA [None]
  - BLOOD MAGNESIUM ABNORMAL [None]
  - BLOOD POTASSIUM ABNORMAL [None]
  - CARDIAC DISORDER [None]
  - GAIT DISTURBANCE [None]
  - GASTROINTESTINAL DISORDER [None]
  - HEART RATE IRREGULAR [None]
  - PARALYSIS [None]
  - RESPIRATORY ARREST [None]
  - TREMOR [None]
